FAERS Safety Report 16896646 (Version 1)
Quarter: 2019Q4

REPORT INFORMATION
  Report Type: Report from Study
  Country: CL (occurrence: CL)
  Receive Date: 20191008
  Receipt Date: 20191008
  Transmission Date: 20200122
  Serious: Yes (Other)
  Sender: FDA-Public Use
  Company Number: CL-ACTELION-A-US2019-196706

PATIENT
  Age: 28 Year
  Sex: Female

DRUGS (1)
  1. VENTAVIS [Suspect]
     Active Substance: ILOPROST
     Indication: PULMONARY HYPERTENSION
     Dosage: 1 ML, QID
     Route: 055
     Dates: start: 20190628

REACTIONS (5)
  - Blister [Unknown]
  - Incorrect dose administered [Unknown]
  - Product use issue [Unknown]
  - Choking [Not Recovered/Not Resolved]
  - Nausea [Not Recovered/Not Resolved]

NARRATIVE: CASE EVENT DATE: 20190628
